FAERS Safety Report 5129163-X (Version None)
Quarter: 2006Q4

REPORT INFORMATION
  Report Type: 
  Country: None (occurrence: None)
  Receive Date: 20061011
  Receipt Date: 20060930
  Transmission Date: 20070319
  Serious: Yes (Hospitalization)
  Sender: FDA-Public Use
  Company Number: DE-2006-029675

PATIENT
  Age: 33 Year
  Sex: Female

DRUGS (1)
  1. MIRENA [Suspect]
     Indication: CONTRACEPTION
     Dosage: 20 UG/DAY, CONT, INTRA-UTERINE
     Route: 015
     Dates: start: 20060201, end: 20061002

REACTIONS (6)
  - COMPLICATION OF DEVICE INSERTION [None]
  - EPIGASTRIC DISCOMFORT [None]
  - IUD MIGRATION [None]
  - OVARIAN CYST [None]
  - PAIN [None]
  - VAGINAL HAEMORRHAGE [None]
